FAERS Safety Report 7920764 (Version 7)
Quarter: 2013Q3

REPORT INFORMATION
  Report Type: Spontaneous
  Country: US (occurrence: US)
  Receive Date: 20110429
  Receipt Date: 20130829
  Transmission Date: 20140515
  Serious: No
  Sender: FDA-Public Use
  Company Number: US-ASTRAZENECA-2010SE17795

PATIENT
  Age: 53 Year
  Sex: Female

DRUGS (1)
  1. NEXIUM [Suspect]
     Route: 048

REACTIONS (14)
  - Dysphonia [Unknown]
  - Anxiety [Unknown]
  - Gastrooesophageal reflux disease [Unknown]
  - Adverse event [Unknown]
  - Aphagia [Unknown]
  - Oesophageal disorder [Unknown]
  - Pain [Unknown]
  - Throat irritation [Unknown]
  - Multiple allergies [Unknown]
  - Influenza [Unknown]
  - Nasopharyngitis [Unknown]
  - Malaise [Unknown]
  - Hyperhidrosis [Unknown]
  - Drug dose omission [Unknown]
